FAERS Safety Report 7622960-8 (Version None)
Quarter: 2011Q3

REPORT INFORMATION
  Report Type: 
  Country: None (occurrence: None)
  Receive Date: 20110720
  Receipt Date: 20110711
  Transmission Date: 20111222
  Serious: Yes (Hospitalization)
  Sender: FDA-Public Use
  Company Number: PE-SANOFI-AVENTIS-2010SA072631

PATIENT
  Age: 63 Year
  Sex: Male

DRUGS (5)
  1. PREDNISONE [Suspect]
     Indication: PROSTATE CANCER
     Route: 048
     Dates: start: 20100609, end: 20101107
  2. DOCETAXEL [Suspect]
     Indication: PROSTATE CANCER
     Route: 041
     Dates: start: 20100609, end: 20100609
  3. BLINDED THERAPY [Suspect]
     Indication: PROSTATE CANCER
     Route: 048
     Dates: start: 20100609, end: 20101107
  4. DOCETAXEL [Suspect]
     Route: 041
     Dates: start: 20101107, end: 20101107
  5. DOCETAXEL [Suspect]
     Route: 041
     Dates: start: 20100101, end: 20100101

REACTIONS (2)
  - CEREBRAL HAEMORRHAGE [None]
  - ABDOMINAL PAIN [None]
